FAERS Safety Report 6622443-8 (Version None)
Quarter: 2010Q1

REPORT INFORMATION
  Report Type: 
  Country: None (occurrence: None)
  Receive Date: 20100310
  Receipt Date: 20100127
  Transmission Date: 20100710
  Serious: No
  Sender: FDA-Public Use
  Company Number: US-BIOGENIDEC-2010BI003143

PATIENT
  Age: 34 Year
  Sex: Female

DRUGS (4)
  1. AVONEX [Suspect]
     Indication: MULTIPLE SCLEROSIS
     Route: 030
     Dates: start: 20000101, end: 20010101
  2. AVONEX [Suspect]
     Route: 030
     Dates: start: 20010101, end: 20010101
  3. AVONEX [Suspect]
     Route: 030
     Dates: start: 20010101, end: 20010101
  4. AVONEX [Suspect]
     Route: 030
     Dates: start: 20010101, end: 20010101

REACTIONS (3)
  - INFLUENZA LIKE ILLNESS [None]
  - INSOMNIA [None]
  - MULTIPLE SCLEROSIS [None]
